FAERS Safety Report 10147472 (Version 2)
Quarter: 2014Q2

REPORT INFORMATION
  Report Type: Spontaneous
  Country: IT (occurrence: IT)
  Receive Date: 20140501
  Receipt Date: 20140625
  Transmission Date: 20141212
  Serious: Yes (Hospitalization)
  Sender: FDA-Public Use
  Company Number: IT-PFIZER INC-2014118427

PATIENT
  Age: 25 Year
  Sex: Female

DRUGS (4)
  1. XANAX [Suspect]
     Indication: INTENTIONAL SELF-INJURY
     Dosage: UNK
     Dates: start: 20140410, end: 20140410
  2. TAVOR [Suspect]
     Indication: INTENTIONAL SELF-INJURY
     Dosage: UNK
     Dates: start: 20140410, end: 20140410
  3. FLUVOXAMINE [Suspect]
     Indication: INTENTIONAL SELF-INJURY
     Dosage: UNK
     Dates: start: 20140410, end: 20140410
  4. ORLISTAT [Suspect]
     Indication: INTENTIONAL SELF-INJURY
     Dosage: UNK
     Dates: start: 20140410, end: 20140410

REACTIONS (3)
  - Drug abuse [Recovered/Resolved]
  - Hypokalaemia [Recovered/Resolved]
  - Sopor [Recovered/Resolved]
